FAERS Safety Report 4800069-6 (Version None)
Quarter: 2005Q4

REPORT INFORMATION
  Report Type: 
  Country: None (occurrence: None)
  Receive Date: 20051017
  Receipt Date: 20051005
  Transmission Date: 20060501
  Serious: Yes (Hospitalization)
  Sender: FDA-Public Use
  Company Number: 2005AP05292

PATIENT
  Age: 33 Year
  Sex: Male

DRUGS (6)
  1. ZOMIG RM [Suspect]
     Indication: MIGRAINE
     Route: 048
     Dates: start: 20050901
  2. LOXONIN [Concomitant]
     Route: 048
  3. FLOMOX [Concomitant]
     Route: 048
  4. CODEINE PHOSPHATE [Concomitant]
     Route: 048
  5. TALION [Concomitant]
     Route: 048
  6. HUSTAGIN [Concomitant]
     Route: 048

REACTIONS (3)
  - HEADACHE [None]
  - LOSS OF CONSCIOUSNESS [None]
  - VOMITING [None]
